FAERS Safety Report 24436871 (Version 3)
Quarter: 2025Q3

REPORT INFORMATION
  Report Type: Report from Study
  Country: US (occurrence: US)
  Receive Date: 20241015
  Receipt Date: 20250804
  Transmission Date: 20251021
  Serious: Yes (Hospitalization, Other)
  Sender: TAKEDA
  Company Number: US-TAKEDA-US202027557

PATIENT
  Sex: Female
  Weight: 77 kg

DRUGS (11)
  1. HUMAN C1-ESTERASE INHIBITOR [Suspect]
     Active Substance: HUMAN C1-ESTERASE INHIBITOR
     Indication: Immune system disorder
     Dosage: 1000 INTERNATIONAL UNIT, QOD
  2. HUMAN C1-ESTERASE INHIBITOR [Suspect]
     Active Substance: HUMAN C1-ESTERASE INHIBITOR
     Dosage: 1000 INTERNATIONAL UNIT, QOD
     Dates: start: 20120110
  3. HUMAN C1-ESTERASE INHIBITOR [Suspect]
     Active Substance: HUMAN C1-ESTERASE INHIBITOR
  4. TAKHZYRO [Suspect]
     Active Substance: LANADELUMAB-FLYO
     Indication: Hereditary angioedema
     Dosage: 300 MILLIGRAM, Q2WEEKS
  5. TAKHZYRO [Suspect]
     Active Substance: LANADELUMAB-FLYO
     Indication: Immune system disorder
  6. TAKHZYRO [Suspect]
     Active Substance: LANADELUMAB-FLYO
  7. FIRAZYR [Concomitant]
     Active Substance: ICATIBANT ACETATE
  8. SODIUM CHLORIDE [Concomitant]
     Active Substance: SODIUM CHLORIDE
  9. STERILE WATER [Concomitant]
     Active Substance: WATER
  10. EPINEPHRINE [Concomitant]
     Active Substance: EPINEPHRINE
  11. VITAMINS [Concomitant]
     Active Substance: VITAMINS

REACTIONS (8)
  - Large intestinal haemorrhage [Unknown]
  - Haemorrhage [Unknown]
  - Gastrointestinal disorder [Unknown]
  - Hereditary angioedema [Unknown]
  - Insurance issue [Unknown]
  - Inappropriate schedule of product administration [Unknown]
  - Product dose omission issue [Unknown]
  - Product use issue [Unknown]
